FAERS Safety Report 8361210-4 (Version None)
Quarter: 2012Q2

REPORT INFORMATION
  Report Type: 
  Country: None (occurrence: None)
  Receive Date: 20120515
  Receipt Date: 20120507
  Transmission Date: 20120825
  Serious: Yes (Death, Life-Threatening, Other)
  Sender: FDA-Public Use
  Company Number: JP-ROCHE-1052192

PATIENT
  Sex: Female
  Weight: 55 kg

DRUGS (5)
  1. ZANTAC [Concomitant]
     Route: 041
     Dates: start: 20120314, end: 20120314
  2. AVASTIN [Suspect]
     Indication: BREAST CANCER METASTATIC
     Route: 041
     Dates: start: 20120314, end: 20120314
  3. PACLITAXEL [Suspect]
     Indication: BREAST CANCER METASTATIC
     Route: 041
     Dates: start: 20120314, end: 20120314
  4. RESTAMIN [Concomitant]
     Route: 048
     Dates: start: 20120314, end: 20120314
  5. DEXAMETHASONE SODIUM PHOSPHATE [Concomitant]
     Route: 041
     Dates: start: 20120314, end: 20120314

REACTIONS (7)
  - PANCYTOPENIA [None]
  - HEPATIC FAILURE [None]
  - VOMITING [None]
  - KLEBSIELLA TEST POSITIVE [None]
  - VENTRICULAR FIBRILLATION [None]
  - MULTI-ORGAN FAILURE [None]
  - ASPIRATION [None]
